FAERS Safety Report 7343024-7 (Version None)
Quarter: 2011Q1

REPORT INFORMATION
  Report Type: 
  Country: None (occurrence: None)
  Receive Date: 20110310
  Receipt Date: 20110304
  Transmission Date: 20110831
  Serious: Yes (Death)
  Sender: FDA-Public Use
  Company Number: PHHY2011BR17803

PATIENT
  Age: 85 Year
  Sex: Male

DRUGS (4)
  1. DIOVAN AMLO [Suspect]
     Dosage: 80/5MG
  2. DIOVAN AMLO FIX [Suspect]
     Dosage: 160/5 MG
  3. DIOVAN AMLO [Suspect]
     Dosage: 160/5MG
  4. DIOVAN AMLO FIX [Suspect]
     Dosage: 160/10 MG

REACTIONS (1)
  - DEATH [None]
